FAERS Safety Report 6531015-5 (Version None)
Quarter: 2010Q1

REPORT INFORMATION
  Report Type: 
  Country: None (occurrence: None)
  Receive Date: 20100108
  Receipt Date: 20090908
  Transmission Date: 20100710
  Serious: No
  Sender: FDA-Public Use
  Company Number: A0806370A

PATIENT
  Age: 70 Year
  Sex: Male

DRUGS (6)
  1. LOVAZA [Suspect]
     Dosage: 2CAP PER DAY
     Route: 048
     Dates: start: 20090201
  2. ASPIRIN [Suspect]
     Dosage: 81MG PER DAY
     Dates: start: 20040101
  3. CRESTOR [Concomitant]
  4. ATENOLOL [Concomitant]
  5. LISINOPRIL [Concomitant]
  6. M.V.I. [Concomitant]

REACTIONS (1)
  - PLATELET COUNT ABNORMAL [None]
